FAERS Safety Report 9574777 (Version 4)
Quarter: 2014Q3

REPORT INFORMATION
  Report Type: Spontaneous
  Country: FR (occurrence: FR)
  Receive Date: 20131001
  Receipt Date: 20140910
  Transmission Date: 20150326
  Serious: Yes (Hospitalization, Other)
  Sender: FDA-Public Use
  Company Number: FR-ELI_LILLY_AND_COMPANY-FR201309007626

PATIENT
  Age: 53 Year
  Sex: Male

DRUGS (9)
  1. VITAMIN B12 [Concomitant]
     Active Substance: CYANOCOBALAMIN
     Dosage: UNK
     Dates: start: 20120131
  2. ZOPHREN                            /00955301/ [Concomitant]
     Active Substance: ONDANSETRON
     Dosage: UNK
     Dates: start: 20120131
  3. SOLU-PRED [Concomitant]
     Active Substance: METHYLPREDNISOLONE
     Dosage: 40 MG, QD
  4. SPIRIVA [Concomitant]
     Active Substance: TIOTROPIUM BROMIDE MONOHYDRATE
     Dosage: UNK
  5. ALIMTA [Suspect]
     Active Substance: PEMETREXED DISODIUM
     Indication: LUNG ADENOCARCINOMA
     Dosage: 880 MG, UNKNOWN
     Route: 042
     Dates: start: 20120131, end: 20131118
  6. RISPERDAL [Concomitant]
     Active Substance: RISPERIDONE
     Dosage: 3 MG, QD
  7. ONBREZ [Concomitant]
     Active Substance: INDACATEROL
     Dosage: UNK
     Route: 055
  8. NORSET [Concomitant]
     Active Substance: MIRTAZAPINE
  9. SPECIAFOLDINE [Concomitant]
     Active Substance: FOLIC ACID
     Dosage: UNK
     Dates: start: 20120131

REACTIONS (6)
  - Rash erythematous [Unknown]
  - Erysipelas [Unknown]
  - Angiodermatitis [Unknown]
  - Dermatitis [Recovered/Resolved with Sequelae]
  - C-reactive protein increased [Recovered/Resolved]
  - Blister [Unknown]

NARRATIVE: CASE EVENT DATE: 20130805
